FAERS Safety Report 20859563 (Version 1)
Quarter: 2022Q2

REPORT INFORMATION
  Report Type: Spontaneous
  Country: US (occurrence: US)
  Receive Date: 20220523
  Receipt Date: 20220523
  Transmission Date: 20220721
  Serious: Yes (Hospitalization, Other)
  Sender: FDA-Public Use
  Company Number: US-NOVOPROD-917851

PATIENT
  Age: 80 Year
  Sex: Female

DRUGS (2)
  1. NOVOLOG [Suspect]
     Active Substance: INSULIN ASPART
     Indication: Diabetes mellitus
     Dosage: UNK (SLIDING SCALE)
     Route: 058
     Dates: start: 2016
  2. TRESIBA [Suspect]
     Active Substance: INSULIN DEGLUDEC
     Indication: Diabetes mellitus
     Dosage: 75 IU, QD (AT NIGHT)
     Route: 065
     Dates: start: 2016

REACTIONS (9)
  - Fall [Recovered/Resolved]
  - Pelvic fracture [Recovered/Resolved]
  - Joint injury [Unknown]
  - Condition aggravated [Unknown]
  - Glomerular filtration rate decreased [Unknown]
  - Milk allergy [Unknown]
  - Diarrhoea [Unknown]
  - Glycosylated haemoglobin decreased [Recovered/Resolved]
  - Blood glucose decreased [Recovered/Resolved]

NARRATIVE: CASE EVENT DATE: 20210301
